FAERS Safety Report 15950385 (Version 2)
Quarter: 2019Q2

REPORT INFORMATION
  Report Type: Report from Study
  Country: None (occurrence: US)
  Receive Date: 20190212
  Receipt Date: 20190425
  Transmission Date: 20190711
  Serious: Yes (Other)
  Sender: FDA-Public Use
  Company Number: US-ABBVIE-19K-163-2654999-00

PATIENT
  Age: 29 Year
  Sex: Female
  Weight: 100.33 kg

DRUGS (1)
  1. HUMIRA [Suspect]
     Active Substance: ADALIMUMAB
     Indication: CROHN^S DISEASE
     Route: 058
     Dates: start: 2013

REACTIONS (7)
  - Injection site discomfort [Unknown]
  - Crohn^s disease [Unknown]
  - Small intestinal resection [Unknown]
  - Intervertebral disc degeneration [Unknown]
  - Nerve injury [Unknown]
  - Fibromyalgia [Not Recovered/Not Resolved]
  - Injection site pain [Unknown]

NARRATIVE: CASE EVENT DATE: 20130603
